FAERS Safety Report 6561706-1 (Version None)
Quarter: 2010Q1

REPORT INFORMATION
  Report Type: 
  Country: None (occurrence: None)
  Receive Date: 20100130
  Receipt Date: 20091026
  Transmission Date: 20100710
  Serious: No
  Sender: FDA-Public Use
  Company Number: US-ABBOTT-09P-163-0604896-00

PATIENT
  Sex: Male

DRUGS (6)
  1. HUMIRA [Suspect]
     Indication: CROHN'S DISEASE
     Dosage: DAY 1
     Dates: start: 20090723
  2. DESMOPRESSIN [Concomitant]
     Indication: DRUG USE FOR UNKNOWN INDICATION
  3. NYSTATIN [Concomitant]
     Indication: DRUG USE FOR UNKNOWN INDICATION
  4. PENTASA [Concomitant]
     Indication: DRUG USE FOR UNKNOWN INDICATION
  5. FOLIC ACID [Concomitant]
     Indication: DRUG USE FOR UNKNOWN INDICATION
  6. MULTI-VITAMINS [Concomitant]
     Indication: DRUG USE FOR UNKNOWN INDICATION

REACTIONS (3)
  - FUNGAL INFECTION [None]
  - NASOPHARYNGITIS [None]
  - RASH MACULAR [None]
